FAERS Safety Report 6746898-3 (Version None)
Quarter: 2010Q2

REPORT INFORMATION
  Report Type: 
  Country: None (occurrence: None)
  Receive Date: 20100528
  Receipt Date: 20100108
  Transmission Date: 20101027
  Serious: No
  Sender: FDA-Public Use
  Company Number: US-ASTRAZENECA-2010SE01879

PATIENT

DRUGS (6)
  1. PRILOSEC OTC [Suspect]
     Route: 048
     Dates: start: 20091221
  2. ANTIHYPERTENSIVES [Concomitant]
     Dosage: UNKNOWN
  3. RENAL SYSTEM [Concomitant]
     Dosage: UNKNOWN
  4. MULTI-VITAMINS [Concomitant]
     Dosage: UNKNOWN
  5. ASPIRIN [Concomitant]
     Dosage: UNKNOWN
  6. PAIN MEDICATION [Concomitant]
     Dosage: UNKNOWN

REACTIONS (2)
  - CHEST DISCOMFORT [None]
  - PAIN [None]
